FAERS Safety Report 20051290 (Version 1)
Quarter: 2021Q4

REPORT INFORMATION
  Report Type: Spontaneous
  Country: CA (occurrence: CA)
  Receive Date: 20211110
  Receipt Date: 20211110
  Transmission Date: 20220304
  Serious: Yes (Other)
  Sender: FDA-Public Use
  Company Number: CA-SAMSUNG BIOEPIS-SB-2021-25713

PATIENT
  Age: 55 Year
  Sex: Female

DRUGS (3)
  1. INFLIXIMAB [Suspect]
     Active Substance: INFLIXIMAB
     Indication: Crohn^s disease
     Route: 042
  2. GABAPENTIN [Concomitant]
     Active Substance: GABAPENTIN
     Indication: Product used for unknown indication
     Dosage: UNKNOWN
     Route: 065
  3. PANTOPRAZOLE [Concomitant]
     Active Substance: PANTOPRAZOLE
     Indication: Product used for unknown indication
     Dosage: UNKNOWN
     Route: 065

REACTIONS (15)
  - Condition aggravated [Unknown]
  - Cough [Unknown]
  - Discomfort [Unknown]
  - Erythema [Unknown]
  - Eye discharge [Unknown]
  - Eye swelling [Unknown]
  - Hypersensitivity [Unknown]
  - Infected fistula [Unknown]
  - Infection [Unknown]
  - Malaise [Unknown]
  - Nasal oedema [Unknown]
  - Ocular discomfort [Unknown]
  - Oropharyngeal pain [Unknown]
  - Pain [Unknown]
  - Swelling face [Unknown]
